FAERS Safety Report 10381799 (Version 1)
Quarter: 2014Q3

REPORT INFORMATION
  Report Type: Spontaneous
  Country: GB (occurrence: None)
  Receive Date: 20140811
  Receipt Date: 20140811
  Transmission Date: 20150326
  Serious: Yes (Other)
  Sender: FDA-Public Use
  Company Number: FK201400347

PATIENT
  Age: 36 Year
  Sex: Male

DRUGS (9)
  1. DOXORUBICIN (DOXORUBICIN) (DOXORUBICIN) [Suspect]
     Active Substance: DOXORUBICIN
     Indication: B-CELL LYMPHOMA
     Dates: start: 20120716
  2. ZAPONEX (CLOZAPINE) (CLOZAPINE) [Suspect]
     Active Substance: CLOZAPINE
     Indication: SCHIZOPHRENIA
     Route: 048
     Dates: start: 20100720, end: 2014
  3. CYTARABINE (MANUFACTURER UNKNOWN) (CYTARABINE) (CYTARABINE) [Suspect]
     Active Substance: CYTARABINE
     Indication: B-CELL LYMPHOMA
  4. DEXAMETHASONE (DEXAMETHASONE) (DEXAMETHASONE) [Suspect]
     Active Substance: DEXAMETHASONE
     Indication: B-CELL LYMPHOMA
  5. RITUXIMAB (RITUXIMAB) (RITUXIMAB) [Suspect]
     Active Substance: RITUXIMAB
     Indication: B-CELL LYMPHOMA
     Dates: start: 20120716
  6. CISPLATIN (CISPLATIN) (CISPLATIN) [Suspect]
     Active Substance: CISPLATIN
     Indication: B-CELL LYMPHOMA
  7. VINCRISTINE (VINCRISTINE) (VINCRISTINE) [Suspect]
     Active Substance: VINCRISTINE
     Indication: B-CELL LYMPHOMA
     Dates: start: 20120716
  8. PREDNISOLONE (PREDNISOLONE) (PREDNISOLONE) [Suspect]
     Active Substance: PREDNISOLONE
     Indication: B-CELL LYMPHOMA
     Dates: start: 20120716
  9. CYCLOPHOSPHAMIDE (CYLCLOPHOSPHAMIDE) (CYCLOPHOSPHAMIDE) [Suspect]
     Active Substance: CYCLOPHOSPHAMIDE
     Indication: B-CELL LYMPHOMA
     Dates: start: 20120716

REACTIONS (5)
  - Pancytopenia [None]
  - B-cell lymphoma recurrent [None]
  - Thrombocytopenia [None]
  - Leukopenia [None]
  - Bone marrow failure [None]
